FAERS Safety Report 10776485 (Version 1)
Quarter: 2015Q1

REPORT INFORMATION
  Report Type: Spontaneous
  Country: US (occurrence: None)
  Receive Date: 20150205
  Receipt Date: 20150205
  Transmission Date: 20150721
  Serious: Yes (Other)
  Sender: FDA-Public Use
  Company Number: None

PATIENT
  Age: 9 Year
  Sex: Female

DRUGS (1)
  1. EXJADE [Suspect]
     Active Substance: DEFERASIROX
     Indication: IRON OVERLOAD
     Dosage: 250 MG 5 DAILY PO
     Route: 048
     Dates: start: 201206

REACTIONS (2)
  - Lip swelling [None]
  - Peripheral swelling [None]

NARRATIVE: CASE EVENT DATE: 20150204
